FAERS Safety Report 11475746 (Version 1)
Quarter: 2015Q3

REPORT INFORMATION
  Report Type: Spontaneous
  Country: JP (occurrence: JP)
  Receive Date: 20150909
  Receipt Date: 20150909
  Transmission Date: 20151125
  Serious: Yes (Other)
  Sender: FDA-Public Use
  Company Number: JP-SUN PHARMACEUTICAL INDUSTRIES LTD-2015R1-102689

PATIENT
  Sex: Male

DRUGS (7)
  1. CARBOPLATIN. [Suspect]
     Active Substance: CARBOPLATIN
     Indication: PROSTATE CANCER
     Dosage: UNK
     Route: 065
  2. PREDNISONE. [Suspect]
     Active Substance: PREDNISONE
     Indication: PROSTATE CANCER
     Dosage: UNK
     Route: 065
     Dates: start: 200705
  3. CARBOPLATIN. [Suspect]
     Active Substance: CARBOPLATIN
     Indication: PROSTATE CANCER
     Dosage: UNK
     Route: 065
  4. DOCETAXEL. [Suspect]
     Active Substance: DOCETAXEL
     Indication: PROSTATE CANCER
     Dosage: UNK
     Route: 065
  5. ESTRAMUSTINE PHOSPHATE [Suspect]
     Active Substance: ESTRAMUSTINE PHOSPHATE
     Indication: PROSTATIC SPECIFIC ANTIGEN INCREASED
     Dosage: UNK
     Route: 065
  6. DOCETAXEL. [Suspect]
     Active Substance: DOCETAXEL
     Indication: PROSTATE CANCER
     Dosage: UNK
     Route: 065
     Dates: start: 200705
  7. TEGAFUR-URACIL [Suspect]
     Active Substance: TEGAFUR\URACIL
     Indication: PROSTATIC SPECIFIC ANTIGEN INCREASED
     Dosage: UNK
     Route: 065

REACTIONS (10)
  - Leukopenia [Unknown]
  - Prostatic specific antigen increased [Unknown]
  - Therapeutic response decreased [Unknown]
  - Metastases to bone [Unknown]
  - Metastases to liver [Unknown]
  - Disease progression [Unknown]
  - General physical health deterioration [Unknown]
  - Bone marrow failure [Unknown]
  - Interstitial lung disease [Unknown]
  - Oedema peripheral [Unknown]
